FAERS Safety Report 18348195 (Version 1)
Quarter: 2020Q4

REPORT INFORMATION
  Report Type: Spontaneous
  Country: US (occurrence: US)
  Receive Date: 20201006
  Receipt Date: 20201006
  Transmission Date: 20210114
  Serious: Yes (Other)
  Sender: FDA-Public Use
  Company Number: NVSC2020US268671

PATIENT
  Age: 49 Year
  Sex: Female

DRUGS (2)
  1. EVEROLIMUS. [Suspect]
     Active Substance: EVEROLIMUS
     Dosage: 5 MG
     Route: 065
  2. EVEROLIMUS. [Suspect]
     Active Substance: EVEROLIMUS
     Indication: MALIGNANT NEOPLASM OF THYMUS
     Dosage: 7.5 MG
     Route: 065

REACTIONS (4)
  - Pneumonia [Unknown]
  - Mucosal inflammation [Unknown]
  - Product use in unapproved indication [Unknown]
  - Treatment failure [Unknown]
